FAERS Safety Report 16656980 (Version 2)
Quarter: 2019Q3

REPORT INFORMATION
  Report Type: Report from Study
  Country: CO (occurrence: CO)
  Receive Date: 20190801
  Receipt Date: 20190815
  Transmission Date: 20191004
  Serious: Yes (Death, Hospitalization)
  Sender: FDA-Public Use
  Company Number: CO-SA-2019SA204615

PATIENT
  Age: 69 Year
  Sex: Male

DRUGS (1)
  1. CABAZITAXEL [Suspect]
     Active Substance: CABAZITAXEL
     Indication: HORMONE-REFRACTORY PROSTATE CANCER
     Dosage: 160 MG/1.5 ML, Q3W
     Route: 042
     Dates: start: 20190616, end: 20190616

REACTIONS (4)
  - Oropharyngeal pain [Recovering/Resolving]
  - Musculoskeletal pain [Recovering/Resolving]
  - Respiratory arrest [Fatal]
  - Dysphagia [Recovering/Resolving]

NARRATIVE: CASE EVENT DATE: 20190718
